FAERS Safety Report 7613552-5 (Version None)
Quarter: 2011Q3

REPORT INFORMATION
  Report Type: 
  Country: None (occurrence: None)
  Receive Date: 20110708
  Receipt Date: 20110630
  Transmission Date: 20111222
  Serious: Yes (Hospitalization)
  Sender: FDA-Public Use
  Company Number: 2011SP000038

PATIENT
  Age: 56 Year
  Sex: Female
  Weight: 78 kg

DRUGS (4)
  1. ORGARAN [Suspect]
     Indication: HEPARIN-INDUCED THROMBOCYTOPENIA
     Dosage: SC
     Route: 058
     Dates: start: 20101208, end: 20101213
  2. ASPIRIN [Concomitant]
  3. INNOHEP [Suspect]
     Indication: PERIPHERAL ISCHAEMIA
     Dosage: 0.6 ML;QD;SC
     Route: 058
     Dates: start: 20101118, end: 20101207
  4. ACETAMINOPHEN AND TRAMADOL HCL [Concomitant]

REACTIONS (19)
  - SKIN ULCER [None]
  - PLATELET AGGREGATION INCREASED [None]
  - LIVEDO RETICULARIS [None]
  - VASCULITIS [None]
  - SKIN NECROSIS [None]
  - CROSS SENSITIVITY REACTION [None]
  - AORTIC THROMBOSIS [None]
  - ANTIPHOSPHOLIPID SYNDROME [None]
  - PULMONARY EMBOLISM [None]
  - RASH MACULO-PAPULAR [None]
  - PERIPHERAL ISCHAEMIA [None]
  - ANTIPHOSPHOLIPID ANTIBODIES POSITIVE [None]
  - FOOT AMPUTATION [None]
  - TOE AMPUTATION [None]
  - HEPARIN-INDUCED THROMBOCYTOPENIA [None]
  - THROMBOCYTOPENIA [None]
  - RAYNAUD'S PHENOMENON [None]
  - EXTREMITY NECROSIS [None]
  - SYSTEMIC LUPUS ERYTHEMATOSUS [None]
